FAERS Safety Report 23663304 (Version 1)
Quarter: 2024Q1

REPORT INFORMATION
  Report Type: Spontaneous
  Country: PL (occurrence: PL)
  Receive Date: 20240322
  Receipt Date: 20240322
  Transmission Date: 20240409
  Serious: Yes (Life-Threatening, Hospitalization, Other)
  Sender: FDA-Public Use
  Company Number: PL-MLMSERVICE-2024030748713511

PATIENT
  Age: 31 Year
  Sex: Female

DRUGS (2)
  1. AMPHETAMINE [Suspect]
     Active Substance: AMPHETAMINE
  2. NICOTINE [Suspect]
     Active Substance: NICOTINE

REACTIONS (4)
  - Nicotine dependence [Recovered/Resolved]
  - Left ventricular failure [Recovering/Resolving]
  - Drug abuse [Recovered/Resolved]
  - Drug dependence [Recovered/Resolved]
